FAERS Safety Report 7801888-4 (Version None)
Quarter: 2011Q4

REPORT INFORMATION
  Report Type: 
  Country: None (occurrence: None)
  Receive Date: 20111005
  Receipt Date: 20110920
  Transmission Date: 20120403
  Serious: Yes (Hospitalization)
  Sender: FDA-Public Use
  Company Number: FK201102027

PATIENT
  Age: 45 Year
  Sex: Female
  Weight: 77 kg

DRUGS (3)
  1. BIBF 1120(INVESTIGATIONAL DRUG) (INVESTIGATIONAL DRUG) [Suspect]
     Indication: OVARIAN CANCER
     Dosage: 100 MG, ORAL
     Route: 048
     Dates: start: 20101209
  2. PACLITAXEL [Suspect]
     Indication: OVARIAN CANCER
     Dosage: INTRAVENOUS (NOT OTHERWISE SPECIFIED)
     Route: 042
     Dates: start: 20101208, end: 20101208
  3. CARBOPLATIN [Suspect]
     Indication: OVARIAN CANCER
     Dosage: INTRAVENOUS (NOT OTHERWISE SPECIFIED)
     Route: 042
     Dates: start: 20101208, end: 20101208

REACTIONS (6)
  - URINARY TRACT INFECTION [None]
  - STREPTOCOCCUS TEST POSITIVE [None]
  - NEUTROPENIA [None]
  - BACTERIAL TEST POSITIVE [None]
  - PNEUMONIA [None]
  - VISUAL IMPAIRMENT [None]
